FAERS Safety Report 7993531-9 (Version None)
Quarter: 2011Q4

REPORT INFORMATION
  Report Type: 
  Country: None (occurrence: None)
  Receive Date: 20111219
  Receipt Date: 20111207
  Transmission Date: 20120403
  Serious: Yes (Hospitalization)
  Sender: FDA-Public Use
  Company Number: US-RB-035140-11

PATIENT
  Sex: Male

DRUGS (3)
  1. SUBOXONE [Suspect]
     Indication: DRUG DEPENDENCE
     Route: 060
     Dates: end: 20111201
  2. ADDERALL 10 [Suspect]
     Indication: SUBSTANCE USE
     Dosage: UNKNOWN DOSING REGIMEN
     Route: 042
  3. METHAMPHETAMINES [Suspect]
     Indication: SUBSTANCE USE
     Dosage: UNKNOWN DOSING REGIMEN
     Route: 065

REACTIONS (5)
  - ABDOMINAL PAIN [None]
  - AGGRESSION [None]
  - SUBSTANCE USE [None]
  - DRUG WITHDRAWAL SYNDROME [None]
  - RECTAL HAEMORRHAGE [None]
